FAERS Safety Report 7521713-9 (Version None)
Quarter: 2011Q2

REPORT INFORMATION
  Report Type: 
  Country: None (occurrence: None)
  Receive Date: 20110603
  Receipt Date: 20110524
  Transmission Date: 20111010
  Serious: Yes (Hospitalization, Other)
  Sender: FDA-Public Use
  Company Number: US-BAYER-201034241NA

PATIENT
  Age: 34 Year
  Sex: Female
  Weight: 68.027 kg

DRUGS (3)
  1. YAZ [Suspect]
     Indication: CONTRACEPTION
     Dosage: UNK UNK, QD
     Route: 048
     Dates: start: 20070501, end: 20070901
  2. YAZ [Suspect]
     Indication: PREMENSTRUAL SYNDROME
  3. SYNTHROID [Concomitant]
     Indication: HYPOTHYROIDISM
     Dosage: UNK
     Dates: start: 20070501, end: 20071001

REACTIONS (2)
  - CHOLELITHIASIS [None]
  - GALLBLADDER DISORDER [None]
